FAERS Safety Report 10194225 (Version 1)
Quarter: 2014Q2

REPORT INFORMATION
  Report Type: Spontaneous
  Country: US (occurrence: US)
  Receive Date: 20140525
  Receipt Date: 20140525
  Transmission Date: 20141212
  Serious: No
  Sender: FDA-Public Use
  Company Number: US-ASTRAZENECA-2014SE32767

PATIENT
  Sex: Female

DRUGS (2)
  1. SEROQUEL [Suspect]
     Route: 048
  2. SUBAXONE [Concomitant]

REACTIONS (2)
  - Drooling [Unknown]
  - Intentional product misuse [Unknown]
